FAERS Safety Report 25908151 (Version 1)
Quarter: 2025Q4

REPORT INFORMATION
  Report Type: Spontaneous
  Country: EU (occurrence: EU)
  Receive Date: 20251010
  Receipt Date: 20251010
  Transmission Date: 20260118
  Serious: Yes (Other)
  Sender: PFIZER
  Company Number: EU-PFIZER INC-PV202500117098

PATIENT
  Age: 54 Year
  Sex: Female

DRUGS (12)
  1. PRAZEPAM [Suspect]
     Active Substance: PRAZEPAM
     Indication: Migraine
     Dosage: UNK
     Dates: start: 2021
  2. PRAZEPAM [Suspect]
     Active Substance: PRAZEPAM
     Indication: Anxiety disorder
  3. LORAZEPAM [Suspect]
     Active Substance: LORAZEPAM
     Indication: Migraine
     Dosage: UNK
     Dates: start: 2021
  4. LORAZEPAM [Suspect]
     Active Substance: LORAZEPAM
     Indication: Anxiety disorder
  5. BROMAZEPAM [Suspect]
     Active Substance: BROMAZEPAM
     Indication: Migraine
     Dosage: UNK
     Dates: start: 2021
  6. BROMAZEPAM [Suspect]
     Active Substance: BROMAZEPAM
     Indication: Anxiety disorder
  7. AMITRIPTYLINE [Concomitant]
     Active Substance: AMITRIPTYLINE
     Indication: Migraine
     Dosage: UNK
     Dates: start: 2021
  8. AMITRIPTYLINE [Concomitant]
     Active Substance: AMITRIPTYLINE
     Indication: Anxiety disorder
  9. CITALOPRAM [Concomitant]
     Active Substance: CITALOPRAM
     Indication: Migraine
     Dosage: UNK
     Dates: start: 2021
  10. CITALOPRAM [Concomitant]
     Active Substance: CITALOPRAM
     Indication: Anxiety disorder
  11. TIZANIDINE [Concomitant]
     Active Substance: TIZANIDINE
     Indication: Migraine
     Dosage: UNK
     Dates: start: 2021
  12. TIZANIDINE [Concomitant]
     Active Substance: TIZANIDINE
     Indication: Anxiety disorder

REACTIONS (1)
  - Myasthenia gravis [Unknown]

NARRATIVE: CASE EVENT DATE: 20210101
